FAERS Safety Report 5393599-2 (Version None)
Quarter: 2007Q3

REPORT INFORMATION
  Report Type: 
  Country: None (occurrence: None)
  Receive Date: 20070723
  Receipt Date: 20060919
  Transmission Date: 20080115
  Serious: No
  Sender: FDA-Public Use
  Company Number: A0620711A

PATIENT
  Age: 50 Year
  Sex: Female

DRUGS (15)
  1. AVANDIA [Suspect]
     Dosage: 4MG PER DAY
     Route: 048
     Dates: start: 20060916, end: 20060918
  2. GLUCOPHAGE XR [Concomitant]
  3. OSCAL [Concomitant]
  4. VERAPAMIL [Concomitant]
  5. CAPTOPRIL [Concomitant]
  6. PROPRANOLOL [Concomitant]
  7. LASIX [Concomitant]
  8. VYTORIN [Concomitant]
  9. ZOLOFT [Concomitant]
  10. PREVACID [Concomitant]
  11. DETROL LA [Concomitant]
  12. ASPIRIN [Concomitant]
  13. CALCIUM + D [Concomitant]
  14. FOLIC ACID [Concomitant]
  15. MULTI-VITAMIN [Concomitant]

REACTIONS (3)
  - BLOOD GLUCOSE INCREASED [None]
  - FATIGUE [None]
  - STOMACH DISCOMFORT [None]
